FAERS Safety Report 5262889-6 (Version None)
Quarter: 2007Q1

REPORT INFORMATION
  Report Type: 
  Country: None (occurrence: None)
  Receive Date: 20070312
  Receipt Date: 20061127
  Transmission Date: 20070707
  Serious: Yes (Hospitalization)
  Sender: FDA-Public Use
  Company Number: 2005AP02520

PATIENT
  Age: 17837 Day
  Sex: Female
  Weight: 53 kg

DRUGS (4)
  1. ANAPEINE [Suspect]
     Indication: EPIDURAL ANAESTHESIA
     Route: 008
     Dates: start: 20050418, end: 20050418
  2. ANAPEINE [Suspect]
     Route: 008
     Dates: start: 20050418, end: 20050420
  3. ANAPEINE [Suspect]
     Route: 008
  4. CARBOCAIN [Concomitant]
     Indication: EPIDURAL ANAESTHESIA
     Dosage: TEST DOSE
     Route: 008
     Dates: start: 20050418, end: 20050418

REACTIONS (1)
  - NERVE INJURY [None]
